FAERS Safety Report 16619478 (Version 2)
Quarter: 2019Q3

REPORT INFORMATION
  Report Type: Report from Study
  Country: CA (occurrence: CA)
  Receive Date: 20190723
  Receipt Date: 20190724
  Transmission Date: 20191004
  Serious: Yes (Hospitalization, Other)
  Sender: FDA-Public Use
  Company Number: CA-PFIZER INC-2014155719

PATIENT
  Age: 58 Year
  Sex: Female

DRUGS (3)
  1. ENBREL [Suspect]
     Active Substance: ETANERCEPT
     Indication: RHEUMATOID ARTHRITIS
     Dosage: 50 MG, QWK (FREQ: 1 WEEK; INTERVAL: 1 (2 YEARS))
     Route: 058
     Dates: start: 201211, end: 201403
  2. METHOTREXATE SODIUM. [Suspect]
     Active Substance: METHOTREXATE SODIUM
     Indication: RHEUMATOID ARTHRITIS
     Dosage: 20 UNK, QWK
     Route: 048
     Dates: start: 20110607, end: 201403
  3. METHOTREXATE SODIUM. [Suspect]
     Active Substance: METHOTREXATE SODIUM
     Indication: RHEUMATOID ARTHRITIS
     Dosage: FREQ: 1 WEEK; INTERVAL: 1 (4 YEARS)
     Route: 048

REACTIONS (5)
  - Vision blurred [Recovering/Resolving]
  - Pneumonia [Recovered/Resolved]
  - Pulmonary thrombosis [Recovering/Resolving]
  - Feeling abnormal [Recovering/Resolving]
  - Thrombosis [Recovered/Resolved]

NARRATIVE: CASE EVENT DATE: 20140301
